FAERS Safety Report 11272498 (Version 1)
Quarter: 2015Q3

REPORT INFORMATION
  Report Type: Spontaneous
  Country: US (occurrence: None)
  Receive Date: 20150713
  Receipt Date: 20150713
  Transmission Date: 20151125
  Serious: Yes (Hospitalization)
  Sender: FDA-Public Use
  Company Number: None

PATIENT
  Age: 73 Year
  Sex: Male
  Weight: 75.3 kg

DRUGS (6)
  1. METOPROLOL SUC (TOPROL) [Concomitant]
  2. FISH OIL [Concomitant]
     Active Substance: FISH OIL
  3. TASIGNA [Suspect]
     Active Substance: NILOTINIB
     Indication: CHRONIC MYELOID LEUKAEMIA
     Route: 048
     Dates: start: 20140611, end: 201412
  4. SIMVASTATIN. [Concomitant]
     Active Substance: SIMVASTATIN
  5. QUINAPRIL [Concomitant]
     Active Substance: QUINAPRIL\QUINAPRIL HYDROCHLORIDE
  6. ECOTRIN [Concomitant]
     Active Substance: ASPIRIN

REACTIONS (2)
  - Pancreatitis [None]
  - Fatigue [None]
